FAERS Safety Report 21925911 (Version 2)
Quarter: 2023Q1

REPORT INFORMATION
  Report Type: Spontaneous
  Country: DE (occurrence: DE)
  Receive Date: 20230130
  Receipt Date: 20230331
  Transmission Date: 20230417
  Serious: Yes (Hospitalization, Other)
  Sender: FDA-Public Use
  Company Number: DE-002147023-NVSC2022DE264376

PATIENT
  Age: 15 Year

DRUGS (9)
  1. ARIPIPRAZOLE [Interacting]
     Active Substance: ARIPIPRAZOLE
     Indication: Antipsychotic therapy
     Dosage: UNK
     Route: 065
  2. ARIPIPRAZOLE [Interacting]
     Active Substance: ARIPIPRAZOLE
     Indication: Autism spectrum disorder
  3. ARIPIPRAZOLE [Interacting]
     Active Substance: ARIPIPRAZOLE
     Indication: Intellectual disability
  4. PIPAMPERONE HYDROCHLORIDE [Interacting]
     Active Substance: PIPAMPERONE HYDROCHLORIDE
     Indication: Antipsychotic therapy
     Dosage: UNK
     Route: 065
  5. PIPAMPERONE HYDROCHLORIDE [Interacting]
     Active Substance: PIPAMPERONE HYDROCHLORIDE
     Indication: Intellectual disability
  6. PIPAMPERONE HYDROCHLORIDE [Interacting]
     Active Substance: PIPAMPERONE HYDROCHLORIDE
     Indication: Autism spectrum disorder
  7. ZUCLOPENTHIXOL [Interacting]
     Active Substance: ZUCLOPENTHIXOL
     Indication: Antipsychotic therapy
     Dosage: UNK
     Route: 065
  8. ZUCLOPENTHIXOL [Interacting]
     Active Substance: ZUCLOPENTHIXOL
     Indication: Autism spectrum disorder
  9. ZUCLOPENTHIXOL [Interacting]
     Active Substance: ZUCLOPENTHIXOL
     Indication: Intellectual disability

REACTIONS (4)
  - Electrocardiogram QT prolonged [Unknown]
  - Medication error [Unknown]
  - Drug interaction [Unknown]
  - Off label use [Unknown]
